FAERS Safety Report 25205649 (Version 2)
Quarter: 2025Q2

REPORT INFORMATION
  Report Type: Spontaneous
  Country: US (occurrence: US)
  Receive Date: 20250417
  Receipt Date: 20250615
  Transmission Date: 20250717
  Serious: No
  Sender: BOEHRINGER INGELHEIM
  Company Number: US-Komodo Health-a23aa000006ujiAAAQ

PATIENT
  Age: 88 Year
  Sex: Male

DRUGS (1)
  1. JARDIANCE [Suspect]
     Active Substance: EMPAGLIFLOZIN
     Indication: Chronic kidney disease
     Dates: start: 20250129, end: 20250401

REACTIONS (12)
  - Off label use [Recovered/Resolved]
  - Muscular weakness [Recovering/Resolving]
  - Cardiac pacemaker insertion [Recovering/Resolving]
  - Pruritus genital [Recovered/Resolved]
  - Pruritus [Recovered/Resolved]
  - Secretion discharge [Unknown]
  - Dizziness [Recovering/Resolving]
  - Gait inability [Recovering/Resolving]
  - Fall [Recovered/Resolved]
  - Pollakiuria [Not Recovered/Not Resolved]
  - Tremor [Recovered/Resolved]
  - Drug ineffective [Unknown]

NARRATIVE: CASE EVENT DATE: 20250129
